FAERS Safety Report 4837897-7 (Version None)
Quarter: 2005Q4

REPORT INFORMATION
  Report Type: 
  Country: None (occurrence: None)
  Receive Date: 20051123
  Receipt Date: 20051123
  Transmission Date: 20060501
  Serious: Yes (Hospitalization)
  Sender: FDA-Public Use
  Company Number: None

PATIENT
  Age: 52 Year
  Sex: Male
  Weight: 127.9144 kg

DRUGS (3)
  1. CETUXIMAB 250 MG/M2 [Suspect]
     Indication: NEOPLASM MALIGNANT
     Dosage: 563 MG WEEKLY X 15
     Dates: start: 20050821, end: 20051107
  2. TAXOL [Suspect]
     Dosage: 88 MG WEEKLY X 8 DOSES
     Dates: start: 20050802, end: 20051011
  3. CARBOPLATIN [Suspect]
     Dosage: 175 MG WEEKLY X 8
     Dates: start: 20050802, end: 20051011

REACTIONS (6)
  - BODY TEMPERATURE INCREASED [None]
  - CATHETER RELATED INFECTION [None]
  - CONSTIPATION [None]
  - NAUSEA [None]
  - STAPHYLOCOCCAL INFECTION [None]
  - VOMITING [None]
